FAERS Safety Report 4902225-5 (Version None)
Quarter: 2006Q1

REPORT INFORMATION
  Report Type: 
  Country: None (occurrence: None)
  Receive Date: 20060202
  Receipt Date: 20060125
  Transmission Date: 20060701
  Serious: Yes (Other)
  Sender: FDA-Public Use
  Company Number: S06-USA-00295-01

PATIENT
  Age: 15 Year
  Sex: Female

DRUGS (3)
  1. LEXAPRO [Suspect]
     Indication: DEPRESSION
     Dosage: 20 MG QD PO
     Route: 048
     Dates: end: 20060109
  2. BIRTH CONTROL PILLS [Concomitant]
  3. RITALIN [Concomitant]

REACTIONS (9)
  - AGGRESSION [None]
  - AMNESIA [None]
  - CONDITION AGGRAVATED [None]
  - DEPRESSION [None]
  - FEELING ABNORMAL [None]
  - INTENTIONAL OVERDOSE [None]
  - PHYSICAL ASSAULT [None]
  - PYROMANIA [None]
  - SUICIDE ATTEMPT [None]
